FAERS Safety Report 8485519-9 (Version None)
Quarter: 2012Q3

REPORT INFORMATION
  Report Type: 
  Country: None (occurrence: None)
  Receive Date: 20120703
  Receipt Date: 20120622
  Transmission Date: 20120928
  Serious: Yes (Other)
  Sender: FDA-Public Use
  Company Number: US-ROCHE-791407

PATIENT
  Sex: Male
  Weight: 61.29 kg

DRUGS (2)
  1. ACCUTANE [Suspect]
     Dates: start: 20030201, end: 20030401
  2. ACCUTANE [Suspect]
     Indication: ACNE
     Route: 048
     Dates: start: 20021010, end: 20021023

REACTIONS (6)
  - IRRITABLE BOWEL SYNDROME [None]
  - LIP DRY [None]
  - PROCTITIS ULCERATIVE [None]
  - EPISTAXIS [None]
  - INFLAMMATORY BOWEL DISEASE [None]
  - STRESS [None]
